FAERS Safety Report 9808499 (Version 1)
Quarter: 2014Q1

REPORT INFORMATION
  Report Type: Spontaneous
  Country: US (occurrence: US)
  Receive Date: 20140110
  Receipt Date: 20140110
  Transmission Date: 20141002
  Serious: No
  Sender: FDA-Public Use
  Company Number: US-GILEAD-2011-0036149

PATIENT
  Age: 49 Year
  Sex: Male

DRUGS (2)
  1. VIREAD [Suspect]
     Indication: HIV INFECTION
     Dates: start: 1999
  2. TRIZIVIR [Concomitant]
     Indication: HIV INFECTION
     Dates: start: 1999

REACTIONS (9)
  - Stress fracture [Unknown]
  - Musculoskeletal disorder [Unknown]
  - Arthropathy [Unknown]
  - Limb discomfort [Unknown]
  - Metabolic acidosis [Unknown]
  - Musculoskeletal discomfort [Unknown]
  - Nuclear magnetic resonance imaging abnormal [Unknown]
  - Renal failure [Unknown]
  - Arthralgia [Unknown]
